FAERS Safety Report 13068064 (Version 1)
Quarter: 2016Q4

REPORT INFORMATION
  Report Type: Spontaneous
  Country: DE (occurrence: DE)
  Receive Date: 20161228
  Receipt Date: 20161228
  Transmission Date: 20170207
  Serious: Yes (Other)
  Sender: FDA-Public Use
  Company Number: PHHY2016DE176591

PATIENT
  Sex: Male

DRUGS (1)
  1. TASIGNA [Suspect]
     Active Substance: NILOTINIB
     Indication: CHRONIC MYELOID LEUKAEMIA
     Dosage: 600 MG, QD
     Route: 065
     Dates: start: 201402

REACTIONS (7)
  - Sleep disorder [Unknown]
  - Retrograde amnesia [Unknown]
  - Wound haemorrhage [Unknown]
  - Confusional state [Unknown]
  - Eating disorder [Unknown]
  - Loss of consciousness [Unknown]
  - Fall [Unknown]
